FAERS Safety Report 9526295 (Version 1)
Quarter: 2013Q1

REPORT INFORMATION
  Report Type: Spontaneous
  Country: US (occurrence: None)
  Receive Date: 20130305
  Receipt Date: 20130305
  Transmission Date: 20140127
  Serious: Yes (Hospitalization, Other)
  Sender: FDA-Public Use
  Company Number: 163-21880-12020922

PATIENT
  Age: 79 Year
  Sex: Male

DRUGS (9)
  1. REVLIMID [Suspect]
     Indication: PLASMA CELL MYELOMA
     Dosage: 25 MG, DAILY X 21D/28D, PO
     Route: 048
     Dates: start: 20110718, end: 20110728
  2. LISINOPRIL [Suspect]
  3. FLOMAX [Suspect]
  4. DEXAMETHASONE (DEXAMETHASONE) [Concomitant]
  5. OXYCODONE/APAP (OXYCODONE/APAP) [Concomitant]
  6. IBUPROFEN (IBUPROFEN) [Concomitant]
  7. SIMVASTATIN (SIMVASTATIN) [Concomitant]
  8. FINASTERIDE (FINASTERIDE) [Concomitant]
  9. FAMOTIDINE (FAMOTIDINE) [Concomitant]

REACTIONS (2)
  - Syncope [None]
  - Rash [None]
